FAERS Safety Report 17153628 (Version 1)
Quarter: 2019Q4

REPORT INFORMATION
  Report Type: Spontaneous
  Country: SE (occurrence: SE)
  Receive Date: 20191213
  Receipt Date: 20191213
  Transmission Date: 20200122
  Serious: Yes (Other)
  Sender: FDA-Public Use
  Company Number: SE-BAUSCH-BL-2019-063626

PATIENT
  Age: 56 Year
  Sex: Male

DRUGS (1)
  1. ZYBAN [Suspect]
     Active Substance: BUPROPION HYDROCHLORIDE
     Indication: PRODUCT USED FOR UNKNOWN INDICATION
     Dosage: 150 MG ONCE DAILY (150 MG DAILY)
     Route: 065

REACTIONS (2)
  - Abnormal dreams [Unknown]
  - Lethargy [Unknown]

NARRATIVE: CASE EVENT DATE: 2019
